FAERS Safety Report 25435975 (Version 2)
Quarter: 2025Q2

REPORT INFORMATION
  Report Type: Report from Study
  Country: CN (occurrence: CN)
  Receive Date: 20250613
  Receipt Date: 20250620
  Transmission Date: 20250716
  Serious: Yes (Other)
  Sender: GILEAD
  Company Number: CN-GILEAD-2025-0716961

PATIENT

DRUGS (1)
  1. TENOFOVIR ALAFENAMIDE [Suspect]
     Active Substance: TENOFOVIR ALAFENAMIDE
     Indication: Hepatitis B
     Dosage: 25 MG/TIME, ONCE DAILY, ORAL DRUGS FOR 6 MONTHS
     Route: 048

REACTIONS (1)
  - Gastrointestinal haemorrhage [Unknown]
